FAERS Safety Report 15943197 (Version 4)
Quarter: 2019Q2

REPORT INFORMATION
  Report Type: Spontaneous
  Country: US (occurrence: US)
  Receive Date: 20190210
  Receipt Date: 20190620
  Transmission Date: 20190711
  Serious: Yes (Other)
  Sender: FDA-Public Use
  Company Number: US-ASTRAZENECA-2018SF34897

PATIENT
  Sex: Female
  Weight: 92.1 kg

DRUGS (29)
  1. CETIRIZINE [Concomitant]
     Active Substance: CETIRIZINE HYDROCHLORIDE
  2. CLINDAMYCIN. [Concomitant]
     Active Substance: CLINDAMYCIN
  3. NAPROXEN. [Concomitant]
     Active Substance: NAPROXEN
  4. PREVACID [Suspect]
     Active Substance: LANSOPRAZOLE
     Indication: GASTROOESOPHAGEAL REFLUX DISEASE
     Route: 065
     Dates: start: 20021203
  5. HYDROCODONE [Concomitant]
     Active Substance: HYDROCODONE
  6. ACETAMINOPHEN. [Concomitant]
     Active Substance: ACETAMINOPHEN
  7. IBUPROFEN. [Concomitant]
     Active Substance: IBUPROFEN
  8. MOTRIN [Concomitant]
     Active Substance: IBUPROFEN
  9. LISINOPRIL. [Concomitant]
     Active Substance: LISINOPRIL
  10. NEXIUM [Suspect]
     Active Substance: ESOMEPRAZOLE MAGNESIUM
     Indication: GASTROOESOPHAGEAL REFLUX DISEASE
     Route: 048
     Dates: start: 201207, end: 201707
  11. NEXIUM 24HR [Suspect]
     Active Substance: ESOMEPRAZOLE MAGNESIUM
     Route: 048
  12. NEXIUM [Suspect]
     Active Substance: ESOMEPRAZOLE MAGNESIUM
     Indication: GASTROOESOPHAGEAL REFLUX DISEASE
     Route: 048
  13. NEXIUM [Suspect]
     Active Substance: ESOMEPRAZOLE MAGNESIUM
     Indication: GASTROOESOPHAGEAL REFLUX DISEASE
     Route: 048
     Dates: start: 20140314
  14. ALPRAZOLAM. [Concomitant]
     Active Substance: ALPRAZOLAM
  15. NEXIUM [Suspect]
     Active Substance: ESOMEPRAZOLE MAGNESIUM
     Indication: GASTROOESOPHAGEAL REFLUX DISEASE
     Route: 048
     Dates: start: 20120709, end: 20170710
  16. PRILOSEC [Suspect]
     Active Substance: OMEPRAZOLE MAGNESIUM
     Route: 048
  17. PRILOSEC OTC [Suspect]
     Active Substance: OMEPRAZOLE MAGNESIUM
     Route: 048
  18. NAPROXEN. [Concomitant]
     Active Substance: NAPROXEN
  19. BENAZEP [Concomitant]
  20. NEXIUM [Suspect]
     Active Substance: ESOMEPRAZOLE MAGNESIUM
     Indication: GASTROOESOPHAGEAL REFLUX DISEASE
     Route: 048
     Dates: start: 20170710
  21. PREVACID 24 HR [Suspect]
     Active Substance: LANSOPRAZOLE
     Route: 065
  22. CLONIDINE. [Concomitant]
     Active Substance: CLONIDINE
  23. AMLODIPINE [Concomitant]
     Active Substance: AMLODIPINE BESYLATE
  24. PROAIR HFA [Concomitant]
     Active Substance: ALBUTEROL SULFATE
  25. NEXIUM [Suspect]
     Active Substance: ESOMEPRAZOLE MAGNESIUM
     Indication: GASTROOESOPHAGEAL REFLUX DISEASE
     Route: 048
     Dates: start: 20130211
  26. ELIMITE [Concomitant]
     Active Substance: PERMETHRIN
  27. MEDROL [Concomitant]
     Active Substance: METHYLPREDNISOLONE
  28. CYCLOBENZAPRINE. [Concomitant]
     Active Substance: CYCLOBENZAPRINE
  29. CARISOPRODOL. [Concomitant]
     Active Substance: CARISOPRODOL

REACTIONS (4)
  - Renal failure [Unknown]
  - Renal injury [Unknown]
  - Chronic kidney disease [Unknown]
  - Tubulointerstitial nephritis [Unknown]
